FAERS Safety Report 25238056 (Version 1)
Quarter: 2025Q2

REPORT INFORMATION
  Report Type: Spontaneous
  Country: DE (occurrence: DE)
  Receive Date: 20250425
  Receipt Date: 20250425
  Transmission Date: 20250717
  Serious: Yes (Congenital Anomaly)
  Sender: CHEPLAPHARM
  Company Number: None

PATIENT
  Age: 5 Month
  Sex: Male
  Weight: 3.6199 kg

DRUGS (3)
  1. QUETIAPINE [Suspect]
     Active Substance: QUETIAPINE
     Indication: Bipolar disorder
     Dosage: DAILY DOSE: 50 MILLIGRAM
     Route: 064
     Dates: start: 201911, end: 202008
  2. QUETIAPINE [Suspect]
     Active Substance: QUETIAPINE
     Indication: Bipolar disorder
     Dosage: RETARD?DAILY DOSE: 100 MILLIGRAM
     Route: 064
     Dates: start: 201911, end: 202008
  3. LEVOTHYROXINE SODIUM [Concomitant]
     Active Substance: LEVOTHYROXINE SODIUM
     Indication: Hypothyroidism
     Route: 064
     Dates: start: 201911, end: 202008

REACTIONS (2)
  - Hypospadias [Unknown]
  - Foetal exposure during pregnancy [Unknown]
